FAERS Safety Report 19723948 (Version 1)
Quarter: 2021Q3

REPORT INFORMATION
  Report Type: Spontaneous
  Country: US (occurrence: US)
  Receive Date: 20210819
  Receipt Date: 20210819
  Transmission Date: 20211014
  Serious: Yes (Hospitalization)
  Sender: FDA-Public Use
  Company Number: US-SAMSUNG BIOEPIS-SB-2021-19561

PATIENT
  Age: 18 Year
  Sex: Male

DRUGS (2)
  1. INFLIXIMAB [Suspect]
     Active Substance: INFLIXIMAB
     Indication: CROHN^S DISEASE
     Route: 065
  2. INFLIXIMAB [Suspect]
     Active Substance: INFLIXIMAB
     Route: 065

REACTIONS (7)
  - Pleural effusion [Recovered/Resolved]
  - Off label use [Unknown]
  - Lupus pleurisy [Recovered/Resolved]
  - Pericarditis lupus [Recovered/Resolved]
  - Pneumonia mycoplasmal [Unknown]
  - Drug specific antibody present [Unknown]
  - Drug level abnormal [Unknown]
